FAERS Safety Report 25630872 (Version 2)
Quarter: 2025Q3

REPORT INFORMATION
  Report Type: Spontaneous
  Country: JP (occurrence: JP)
  Receive Date: 20250801
  Receipt Date: 20250826
  Transmission Date: 20251021
  Serious: Yes (Other)
  Sender: RADIUS PHARM
  Company Number: JP-RADIUS HEALTH INC.-2025JP001540

PATIENT
  Age: 93 Year
  Sex: Female

DRUGS (10)
  1. ABALOPARATIDE [Suspect]
     Active Substance: ABALOPARATIDE
     Indication: Osteoporosis
     Dosage: 80 MICROGRAM, QD
     Route: 058
     Dates: start: 20250127, end: 20250205
  2. SODIUM PICOSULFATE [Concomitant]
     Active Substance: SODIUM PICOSULFATE
     Indication: Constipation
     Route: 048
     Dates: start: 20231018
  3. RISPERIDONE [Concomitant]
     Active Substance: RISPERIDONE
     Indication: Neurosis
     Dosage: 0.5 MILLIGRAM, QD, AT BEDTIME
     Route: 048
     Dates: start: 20230906
  4. DAYVIGO [Concomitant]
     Active Substance: LEMBOREXANT
     Indication: Insomnia
     Dosage: 5 MILLIGRAM, QD, AT BEDTIME
     Route: 048
     Dates: start: 20230906
  5. MEMANTINE HYDROCHLORIDE [Concomitant]
     Active Substance: MEMANTINE HYDROCHLORIDE
     Indication: Dementia Alzheimer^s type
     Dosage: 20 MILLIGRAM, QD. IN THE MORNING
     Route: 048
     Dates: start: 20230906
  6. AMLODIPINE [Concomitant]
     Active Substance: AMLODIPINE BESYLATE
     Indication: Hypertension
     Dosage: 2.5 MILLIGRAM, QD, IN THE MORNING
     Route: 048
     Dates: start: 20230906
  7. DOXAZOSIN MESYLATE [Concomitant]
     Active Substance: DOXAZOSIN MESYLATE
     Indication: Hypertension
     Dosage: 2 MILLIGRAM, QD, IN THE MORNING
     Route: 048
     Dates: start: 20230906
  8. SENNOSIDES [Concomitant]
     Active Substance: SENNOSIDES
     Indication: Constipation
     Dosage: 24 MILLIGRAM, QD, IN THE MORNING
     Route: 048
     Dates: start: 20240304
  9. POTASSIUM ASPARTATE [Concomitant]
     Active Substance: POTASSIUM ASPARTATE
     Indication: Hypokalaemia
     Dosage: 900 MILLIGRAM, TID, MORNING, NOON, AND EVENING
     Route: 048
     Dates: start: 20231004
  10. ALFACALCIDOL [Concomitant]
     Active Substance: ALFACALCIDOL
     Indication: Product used for unknown indication
     Dosage: 1 MICROGRAM, QD
     Route: 048

REACTIONS (2)
  - Blood pressure decreased [Recovered/Resolved]
  - Loss of consciousness [Recovered/Resolved]

NARRATIVE: CASE EVENT DATE: 20250205
